FAERS Safety Report 4764454-3 (Version None)
Quarter: 2005Q3

REPORT INFORMATION
  Report Type: 
  Country: None (occurrence: None)
  Receive Date: 20050906
  Receipt Date: 20050830
  Transmission Date: 20060218
  Serious: Yes (Death)
  Sender: FDA-Public Use
  Company Number: SEWYE551301APR05

PATIENT
  Sex: Male

DRUGS (1)
  1. EFFEXOR [Suspect]
     Indication: DEPRESSION

REACTIONS (6)
  - BRAIN OEDEMA [None]
  - COMPLETED SUICIDE [None]
  - CONVULSION [None]
  - INTENTIONAL MISUSE [None]
  - SEROTONIN SYNDROME [None]
  - VENTRICULAR FIBRILLATION [None]
